FAERS Safety Report 13162953 (Version 1)
Quarter: 2017Q1

REPORT INFORMATION
  Report Type: Spontaneous
  Country: US (occurrence: US)
  Receive Date: 20170130
  Receipt Date: 20170130
  Transmission Date: 20170428
  Serious: No
  Sender: FDA-Public Use
  Company Number: None

PATIENT
  Age: 73 Year
  Sex: Female
  Weight: 68.04 kg

DRUGS (13)
  1. LOSARTIN [Concomitant]
     Active Substance: LOSARTAN
  2. VITAMIN D3 [Concomitant]
     Active Substance: CHOLECALCIFEROL
  3. LANTUS [Concomitant]
     Active Substance: INSULIN GLARGINE
  4. PANTOPRAZOLE [Concomitant]
     Active Substance: PANTOPRAZOLE SODIUM
  5. ALLERGY RELIEF [Concomitant]
  6. ACETAMINOPHEN. [Concomitant]
     Active Substance: ACETAMINOPHEN
  7. CYMBALTA [Suspect]
     Active Substance: DULOXETINE HYDROCHLORIDE
     Indication: FIBROMYALGIA
     Dosage: FREQUENCY - 1 CAPSULE FIRST WEEK - SECOND WEEK 2 A DAY
     Route: 048
     Dates: start: 20161103, end: 20161214
  8. I CAPS [Concomitant]
  9. ACIDOPHILES [Concomitant]
  10. COUGH MED [Concomitant]
  11. HUMALOG [Concomitant]
     Active Substance: INSULIN LISPRO
  12. PRAVASTATIN. [Concomitant]
     Active Substance: PRAVASTATIN
  13. COQ10 [Concomitant]
     Active Substance: UBIDECARENONE

REACTIONS (1)
  - Hallucination, visual [None]
